FAERS Safety Report 9352691 (Version 1)
Quarter: 2013Q2

REPORT INFORMATION
  Report Type: Report from Study
  Country: GB (occurrence: GB)
  Receive Date: 20130618
  Receipt Date: 20130618
  Transmission Date: 20140414
  Serious: Yes (Death)
  Sender: FDA-Public Use
  Company Number: GB-ROCHE-1236163

PATIENT
  Sex: Female
  Weight: 45 kg

DRUGS (2)
  1. RITUXIMAB [Suspect]
     Indication: RHEUMATOID ARTHRITIS
     Route: 065
     Dates: start: 20100826, end: 20110516
  2. LEFLUNOMIDE [Concomitant]

REACTIONS (3)
  - Pneumonia aspiration [Fatal]
  - Dementia [Fatal]
  - Anaemia [Fatal]
